FAERS Safety Report 14387382 (Version 1)
Quarter: 2018Q1

REPORT INFORMATION
  Report Type: Spontaneous
  Country: FR (occurrence: FR)
  Receive Date: 20180115
  Receipt Date: 20180115
  Transmission Date: 20180509
  Serious: Yes (Hospitalization, Other)
  Sender: FDA-Public Use
  Company Number: FR-MYLANLABS-2018M1002029

PATIENT
  Age: 54 Year
  Sex: Female

DRUGS (2)
  1. FLUOROURACIL. [Concomitant]
     Active Substance: FLUOROURACIL
     Indication: ANAL CANCER
     Dosage: UNK
     Route: 065
  2. MITOMYCIN. [Suspect]
     Active Substance: MITOMYCIN
     Indication: ANAL CANCER
     Dosage: UNK
     Route: 065

REACTIONS (2)
  - Pulmonary veno-occlusive disease [Recovered/Resolved]
  - Right ventricular failure [Unknown]
